FAERS Safety Report 25618554 (Version 1)
Quarter: 2025Q3

REPORT INFORMATION
  Report Type: Spontaneous
  Country: EU (occurrence: EU)
  Receive Date: 20250729
  Receipt Date: 20250729
  Transmission Date: 20251021
  Serious: Yes (Other)
  Sender: MYLAN
  Company Number: EU-STADA-01412323

PATIENT
  Age: 56 Year
  Sex: Male
  Weight: 71 kg

DRUGS (23)
  1. LENALIDOMIDE [Suspect]
     Active Substance: LENALIDOMIDE
     Indication: Diffuse large B-cell lymphoma
     Dosage: 25 MILLIGRAM, QD
     Dates: start: 20220301, end: 20220302
  2. LENALIDOMIDE [Suspect]
     Active Substance: LENALIDOMIDE
  3. DOXORUBICIN [Suspect]
     Active Substance: DOXORUBICIN
     Indication: Diffuse large B-cell lymphoma
     Dosage: UNK UNK, Q3W (HE LAST DOSE PRIOR TO ONSET OF SAE WAS GIVEN ON 01-MAR-2022)
     Dates: start: 20220301
  4. VINCRISTINE [Suspect]
     Active Substance: VINCRISTINE
     Indication: Diffuse large B-cell lymphoma
     Dosage: UNK UNK, Q3W (THE LAST DOSE PRIOR TO ONSET OF SAE WAS GIVEN ON 01-MAR-2022)
     Dates: start: 20220301
  5. PREDNISOLONE [Suspect]
     Active Substance: PREDNISOLONE
     Indication: Diffuse large B-cell lymphoma
     Dosage: UNK UNK, Q3W (THE LAST DOSE PRIOR TO ONSET OF SAE WAS GIVEN ON 01-MAR-2022)
     Dates: start: 20220301
  6. RITUXIMAB [Suspect]
     Active Substance: RITUXIMAB
     Indication: Diffuse large B-cell lymphoma
     Dosage: UNK UNK, Q3W (THE LAST DOSE PRIOR TO ONSET OF SAE WAS GIVEN ON 01-MAR-2022)
     Dates: start: 20220301
  7. CYCLOPHOSPHAMIDE [Suspect]
     Active Substance: CYCLOPHOSPHAMIDE
     Indication: Diffuse large B-cell lymphoma
     Dosage: UNK UNK, Q3W (HE LAST DOSE PRIOR TO ONSET OF SAE WAS GIVEN ON 01-MAR-2022)
     Dates: start: 20220301
  8. TAFASITAMAB [Suspect]
     Active Substance: TAFASITAMAB
     Indication: Diffuse large B-cell lymphoma
     Dates: start: 20220302, end: 20220608
  9. ACETAMINOPHEN [Concomitant]
     Active Substance: ACETAMINOPHEN
     Indication: Diffuse large B-cell lymphoma
  10. VALACYCLOVIR HYDROCHLORIDE [Concomitant]
     Active Substance: VALACYCLOVIR HYDROCHLORIDE
     Indication: Prophylaxis
     Dosage: 1000 MILLIGRAM, QD, DAILY
     Dates: start: 20220228
  11. SODIUM CHLORIDE [Concomitant]
     Active Substance: SODIUM CHLORIDE
     Indication: Prophylaxis
     Dates: start: 20220228, end: 20220304
  12. Novalgin [Concomitant]
     Indication: Pain prophylaxis
     Dosage: 2000 MILLIGRAM, QD, DAILY
     Dates: start: 20220220
  13. PANTOPRAZOLE SODIUM [Concomitant]
     Active Substance: PANTOPRAZOLE SODIUM
     Indication: Prophylaxis
     Dosage: 80 MILLIGRAM, QD
     Dates: start: 20220221
  14. ZOLPIDEM TARTRATE [Concomitant]
     Active Substance: ZOLPIDEM TARTRATE
     Indication: Prophylaxis
     Dates: start: 20220221, end: 20220309
  15. Lidaprim [Concomitant]
     Indication: Prophylaxis
     Dosage: 800/160 MG, DAILY
     Dates: start: 20220228
  16. LOVENOX [Concomitant]
     Active Substance: ENOXAPARIN SODIUM
     Indication: Thrombosis prophylaxis
     Dosage: 40 MILLIGRAM, QD, DAILY
     Dates: start: 20220228
  17. LOVENOX [Concomitant]
     Active Substance: ENOXAPARIN SODIUM
     Indication: Prophylaxis
  18. ZYPREXA [Concomitant]
     Active Substance: OLANZAPINE
     Indication: Prophylaxis
     Dosage: 5 MILLIGRAM, QD, ONCE A DAY
     Dates: start: 20220302, end: 20220304
  19. NEULASTA [Concomitant]
     Active Substance: PEGFILGRASTIM
     Indication: Prophylaxis
     Dates: start: 20220303, end: 20220303
  20. Purinol [Concomitant]
     Indication: Prophylaxis
     Dosage: 300 MILLIGRAM, QD, DAILY
     Dates: start: 20220322, end: 20220323
  21. HYDROMORPHONE HYDROCHLORIDE [Concomitant]
     Active Substance: HYDROMORPHONE HYDROCHLORIDE
     Indication: Prophylaxis
     Dates: start: 20220222, end: 20220309
  22. HYDROMORPHONE HYDROCHLORIDE [Concomitant]
     Active Substance: HYDROMORPHONE HYDROCHLORIDE
     Indication: Diffuse large B-cell lymphoma
  23. PREDNISOLONE [Concomitant]
     Active Substance: PREDNISOLONE
     Indication: Prophylaxis
     Dosage: 100 MILLIGRAM, QD DAILY
     Dates: start: 20220222, end: 20220305

REACTIONS (2)
  - Tumour lysis syndrome [Recovered/Resolved]
  - Product use issue [Unknown]

NARRATIVE: CASE EVENT DATE: 20220302
